FAERS Safety Report 9628857 (Version 1)
Quarter: 2013Q4

REPORT INFORMATION
  Report Type: Spontaneous
  Country: GB (occurrence: GB)
  Receive Date: 20131017
  Receipt Date: 20131017
  Transmission Date: 20140711
  Serious: Yes (Other)
  Sender: FDA-Public Use
  Company Number: GB-JNJFOC-20131007506

PATIENT
  Sex: Male

DRUGS (3)
  1. STELARA [Suspect]
     Indication: PRODUCT USED FOR UNKNOWN INDICATION
     Route: 058
  2. NSAID [Suspect]
     Indication: MUSCULOSKELETAL STIFFNESS
     Route: 065
  3. NSAID [Suspect]
     Indication: MUSCULOSKELETAL PAIN
     Route: 065

REACTIONS (4)
  - Gastrointestinal haemorrhage [Not Recovered/Not Resolved]
  - Nodule [Recovered/Resolved]
  - Musculoskeletal pain [Not Recovered/Not Resolved]
  - Musculoskeletal stiffness [Not Recovered/Not Resolved]
